FAERS Safety Report 13046785 (Version 3)
Quarter: 2017Q2

REPORT INFORMATION
  Report Type: Spontaneous
  Country: US (occurrence: US)
  Receive Date: 20161220
  Receipt Date: 20170417
  Transmission Date: 20170830
  Serious: Yes (Hospitalization, Other)
  Sender: FDA-Public Use
  Company Number: US-BAYER-2016-240627

PATIENT
  Age: 41 Year
  Sex: Female
  Weight: 81.63 kg

DRUGS (2)
  1. MIRENA [Suspect]
     Active Substance: LEVONORGESTREL
     Indication: CONTRACEPTION
     Dosage: 20 MCG/24HR, CONT
     Route: 015
     Dates: start: 200709
  2. ONDANSETRON [Concomitant]
     Active Substance: ONDANSETRON
     Indication: NAUSEA
     Dosage: UNK
     Dates: start: 20141002

REACTIONS (8)
  - Uterine perforation [None]
  - Dysmenorrhoea [Not Recovered/Not Resolved]
  - Device use issue [None]
  - Device difficult to use [None]
  - Swelling [None]
  - Genital haemorrhage [Not Recovered/Not Resolved]
  - Abdominal pain lower [None]
  - Injury [None]

NARRATIVE: CASE EVENT DATE: 201410
